FAERS Safety Report 5809057-4 (Version None)
Quarter: 2008Q3

REPORT INFORMATION
  Report Type: 
  Country: None (occurrence: None)
  Receive Date: 20080711
  Receipt Date: 20080711
  Transmission Date: 20090109
  Serious: Yes (Other)
  Sender: FDA-Public Use
  Company Number: None

PATIENT
  Sex: Female
  Weight: 45.8133 kg

DRUGS (2)
  1. OXCARBAZEPINE [Suspect]
     Indication: CONVULSION
     Dosage: 300 BID PO
     Route: 048
     Dates: start: 20080626, end: 20080710
  2. OXCARBAZEPINE [Suspect]
     Indication: CONVULSION
     Dosage: 300 BID PO
     Route: 048
     Dates: start: 20030101

REACTIONS (2)
  - CONVULSION [None]
  - PHARMACEUTICAL PRODUCT COMPLAINT [None]
